FAERS Safety Report 6283778-4 (Version None)
Quarter: 2009Q3

REPORT INFORMATION
  Report Type: 
  Country: None (occurrence: None)
  Receive Date: 20090724
  Receipt Date: 20090717
  Transmission Date: 20100115
  Serious: Yes (Hospitalization)
  Sender: FDA-Public Use
  Company Number: US-ASTRAZENECA-2009SE05245

PATIENT
  Age: 85 Year
  Sex: Female

DRUGS (2)
  1. METOPROLOL SUCCINATE [Suspect]
     Route: 048
     Dates: start: 20010701
  2. METOPROLOL SUCCINATE [Suspect]
     Route: 048

REACTIONS (8)
  - BLOOD PRESSURE ABNORMAL [None]
  - CARDIAC VALVE DISEASE [None]
  - CORONARY ARTERY DISEASE [None]
  - FALL [None]
  - HIP FRACTURE [None]
  - LOSS OF CONSCIOUSNESS [None]
  - SYNCOPE [None]
  - VISUAL IMPAIRMENT [None]
